FAERS Safety Report 5840950-2 (Version None)
Quarter: 2008Q3

REPORT INFORMATION
  Report Type: 
  Country: None (occurrence: None)
  Receive Date: 20080811
  Receipt Date: 20080730
  Transmission Date: 20090109
  Serious: Yes (Other)
  Sender: FDA-Public Use
  Company Number: BR-PFIZER INC-2008064365

PATIENT
  Sex: Male

DRUGS (1)
  1. VIAGRA [Suspect]
     Route: 048

REACTIONS (8)
  - ABDOMINAL PAIN [None]
  - ANOREXIA [None]
  - DEPRESSED MOOD [None]
  - FEELING ABNORMAL [None]
  - HAEMATEMESIS [None]
  - NAUSEA [None]
  - OESOPHAGEAL PAIN [None]
  - THROAT IRRITATION [None]
